FAERS Safety Report 5077999-6 (Version None)
Quarter: 2006Q3

REPORT INFORMATION
  Report Type: 
  Country: None (occurrence: None)
  Receive Date: 20060811
  Receipt Date: 20060731
  Transmission Date: 20061208
  Serious: Yes (Hospitalization)
  Sender: FDA-Public Use
  Company Number: AU-JNJFOC-20060800694

PATIENT
  Sex: Female
  Weight: 64 kg

DRUGS (2)
  1. TRAMADOL HCL [Suspect]
     Indication: BONE PAIN
     Route: 065
  2. LIPITOR [Concomitant]
     Route: 048

REACTIONS (10)
  - CHEST DISCOMFORT [None]
  - DIZZINESS [None]
  - DYSURIA [None]
  - HEADACHE [None]
  - HYPERHIDROSIS [None]
  - NAUSEA [None]
  - PALPITATIONS [None]
  - RASH PRURITIC [None]
  - TREMOR [None]
  - VISION BLURRED [None]
